FAERS Safety Report 8596728-2 (Version None)
Quarter: 2012Q3

REPORT INFORMATION
  Report Type: 
  Country: None (occurrence: None)
  Receive Date: 20120802
  Receipt Date: 20120723
  Transmission Date: 20120928
  Serious: Yes (Death)
  Sender: FDA-Public Use
  Company Number: 2012000188

PATIENT
  Age: 42 Year
  Sex: Male

DRUGS (6)
  1. CRESTOR [Suspect]
     Indication: DYSLIPIDAEMIA
     Dosage: 10 MG, ORAL
     Route: 048
     Dates: start: 20101201
  2. OMEPRAZOLE [Suspect]
     Indication: PROPHYLAXIS AGAINST GASTROINTESTINAL ULCER
     Dosage: 20 MG, ORAL
     Route: 048
     Dates: start: 20101201
  3. ACEON [Suspect]
     Indication: HYPERTENSION
     Dosage: ORAL
     Route: 048
     Dates: start: 20110128
  4. ATENOLOL [Suspect]
     Indication: PROPHYLAXIS
     Dosage: 100 MG, ORAL
     Route: 048
     Dates: start: 20110112
  5. ASPIRIN [Suspect]
     Indication: VASCULAR STENT INSERTION
     Dosage: 160 MG, ORAL
     Route: 048
     Dates: start: 20101201
  6. PLAVIX [Suspect]
     Indication: VASCULAR STENT INSERTION
     Dosage: 75 MG, ORAL
     Route: 048
     Dates: start: 20110112

REACTIONS (9)
  - INTRAVENTRICULAR HAEMORRHAGE [None]
  - DISEASE RECURRENCE [None]
  - HYDROCEPHALUS [None]
  - HAEMORRHAGIC STROKE [None]
  - COMA [None]
  - RUPTURED CEREBRAL ANEURYSM [None]
  - RESPIRATORY DISORDER [None]
  - MYDRIASIS [None]
  - CARDIAC DISORDER [None]
